FAERS Safety Report 8265263-3 (Version None)
Quarter: 2012Q2

REPORT INFORMATION
  Report Type: 
  Country: None (occurrence: None)
  Receive Date: 20120406
  Receipt Date: 20120330
  Transmission Date: 20120825
  Serious: Yes (Hospitalization)
  Sender: FDA-Public Use
  Company Number: GB-ROCHE-1055457

PATIENT
  Sex: Female
  Weight: 71 kg

DRUGS (3)
  1. PEGINTERFERON ALFA-2A [Suspect]
     Indication: HEPATITIS C
     Dosage: 25,7143 MCG
     Route: 058
  2. BLINDED BI 201335 (HCV PROTEASE INHIBITOR) [Suspect]
     Indication: HEPATITIS C
     Dosage: 1 ANZ
     Route: 048
     Dates: start: 20110707, end: 20111221
  3. COPEGUS [Suspect]
     Indication: HEPATITIS C
     Dosage: 1600 MG/600 MG PM (200 MG)
     Route: 048

REACTIONS (2)
  - ABDOMINAL PAIN [None]
  - LOCAL SWELLING [None]
